FAERS Safety Report 22281152 (Version 3)
Quarter: 2025Q2

REPORT INFORMATION
  Report Type: Spontaneous
  Country: US (occurrence: US)
  Receive Date: 20230504
  Receipt Date: 20250531
  Transmission Date: 20250716
  Serious: No
  Sender: CIPLA
  Company Number: US-CIPLA LTD.-2023US01757

PATIENT

DRUGS (2)
  1. ALBUTEROL [Suspect]
     Active Substance: ALBUTEROL
     Indication: Asthma
  2. ALBUTEROL [Suspect]
     Active Substance: ALBUTEROL
     Dates: start: 202302

REACTIONS (8)
  - Chest discomfort [Recovered/Resolved]
  - Cough [Recovered/Resolved]
  - Middle insomnia [Recovered/Resolved]
  - Thyroid hormones decreased [Not Recovered/Not Resolved]
  - Device malfunction [Unknown]
  - Inappropriate schedule of product administration [Unknown]
  - Device delivery system issue [Unknown]
  - Device issue [Unknown]

NARRATIVE: CASE EVENT DATE: 20230101
